FAERS Safety Report 19092382 (Version 1)
Quarter: 2021Q2

REPORT INFORMATION
  Report Type: Spontaneous
  Country: US (occurrence: US)
  Receive Date: 20210403
  Receipt Date: 20210403
  Transmission Date: 20210717
  Serious: Yes (Other)
  Sender: FDA-Public Use
  Company Number: None

PATIENT
  Age: 73 Year
  Sex: Female
  Weight: 72 kg

DRUGS (4)
  1. ELIQUIS [Concomitant]
     Active Substance: APIXABAN
  2. SOTOLOL [Concomitant]
     Active Substance: SOTALOL
  3. DURISAN HAND SANITIZER [Suspect]
     Active Substance: BENZALKONIUM CHLORIDE
     Indication: COVID-19 PROPHYLAXIS
     Dates: start: 20210201, end: 20210215
  4. CPACK [Concomitant]

REACTIONS (2)
  - Skin irritation [None]
  - Erythema [None]

NARRATIVE: CASE EVENT DATE: 20210215
